FAERS Safety Report 21634037 (Version 1)
Quarter: 2022Q4

REPORT INFORMATION
  Report Type: Spontaneous
  Country: GB (occurrence: GB)
  Receive Date: 20221123
  Receipt Date: 20221123
  Transmission Date: 20230113
  Serious: Yes (Other)
  Sender: FDA-Public Use
  Company Number: GB-MHRA-MED-202211181247172470-WPNTZ

PATIENT
  Age: 30 Year
  Sex: Female
  Weight: 93 kg

DRUGS (1)
  1. ISOTRETINOIN [Suspect]
     Active Substance: ISOTRETINOIN
     Indication: Acne
     Dosage: 30 MILLIGRAM, QD (30 MGS ONCE DAILY)
     Route: 065
     Dates: start: 20220923, end: 20221118

REACTIONS (1)
  - Infection [Recovered/Resolved with Sequelae]
